FAERS Safety Report 5056569-X (Version None)
Quarter: 2006Q3

REPORT INFORMATION
  Report Type: 
  Country: None (occurrence: None)
  Receive Date: 20060720
  Receipt Date: 20060414
  Transmission Date: 20061208
  Serious: Yes (Death)
  Sender: FDA-Public Use
  Company Number: US-BOEHRINGER INGELHEIM PHARMACEUTICALS, INC.-2006-BP-04278BP

PATIENT
  Sex: Female

DRUGS (1)
  1. SPIRIVA [Suspect]
     Route: 055

REACTIONS (2)
  - DEATH [None]
  - PHARMACEUTICAL PRODUCT COMPLAINT [None]
